FAERS Safety Report 18623717 (Version 4)
Quarter: 2021Q1

REPORT INFORMATION
  Report Type: Report from Study
  Country: ES (occurrence: ES)
  Receive Date: 20201216
  Receipt Date: 20210211
  Transmission Date: 20210419
  Serious: Yes (Hospitalization)
  Sender: FDA-Public Use
  Company Number: ES-ROCHE-2728254

PATIENT
  Age: 52 Year
  Sex: Male
  Weight: 83 kg

DRUGS (28)
  1. ATEZOLIZUMAB. [Suspect]
     Active Substance: ATEZOLIZUMAB
     Indication: SMALL CELL LUNG CANCER EXTENSIVE STAGE
     Dosage: DATE OF MOST RECENT DOSE OF ATEZOLIZUMAB PRIOR TO SAE: 25/NOV/2020 AT 14:30
     Route: 041
     Dates: start: 20201104
  2. PREGABALINE [Concomitant]
     Active Substance: PREGABALIN
     Indication: ARTHRALGIA
  3. PREGABALINE [Concomitant]
     Active Substance: PREGABALIN
     Indication: PAIN IN EXTREMITY
  4. OMEPRAZOLE. [Concomitant]
     Active Substance: OMEPRAZOLE
     Indication: PROPHYLAXIS
     Route: 048
  5. DEXKETOPROFEN [Concomitant]
     Active Substance: DEXKETOPROFEN
     Indication: ARTHRALGIA
  6. AMLODIPINE [Concomitant]
     Active Substance: AMLODIPINE BESYLATE
     Indication: HYPERTENSION
     Route: 048
  7. ENALAPRIL [Concomitant]
     Active Substance: ENALAPRIL
     Indication: HYPERTENSION
     Route: 048
  8. PARACETAMOL [Concomitant]
     Active Substance: ACETAMINOPHEN
     Indication: ARTHRALGIA
  9. PARACETAMOL [Concomitant]
     Active Substance: ACETAMINOPHEN
     Indication: PAIN IN EXTREMITY
  10. DEXAMETHASONE. [Concomitant]
     Active Substance: DEXAMETHASONE
     Route: 042
     Dates: start: 20201125, end: 20201125
  11. ETOPOSIDE. [Suspect]
     Active Substance: ETOPOSIDE
     Indication: SMALL CELL LUNG CANCER EXTENSIVE STAGE
     Dosage: ON DAYS 1, 2, AND 3 OF EACH 21?DAY CYCLE DURING THE INDUCTION PHASE (CYCLES 1?4).?DATE OF MOST RECEN
     Route: 042
     Dates: start: 20201104
  12. FENTANIL [Concomitant]
     Active Substance: FENTANYL
     Indication: PAIN IN EXTREMITY
  13. PARACETAMOL [Concomitant]
     Active Substance: ACETAMINOPHEN
     Indication: ARTHRALGIA
     Route: 048
  14. DEXKETOPROFEN [Concomitant]
     Active Substance: DEXKETOPROFEN
     Indication: ARTHRALGIA
     Route: 048
  15. VARENICLINE [Concomitant]
     Active Substance: VARENICLINE
     Indication: PROPHYLAXIS
     Route: 048
     Dates: start: 20201104
  16. SODIUM CHLORIDE. [Concomitant]
     Active Substance: SODIUM CHLORIDE
     Indication: PROPHYLAXIS
     Route: 042
     Dates: start: 20201104, end: 20201104
  17. DUPHALAC [Concomitant]
     Active Substance: LACTULOSE
     Indication: CONSTIPATION
     Route: 048
  18. CARBOPLATIN. [Suspect]
     Active Substance: CARBOPLATIN
     Indication: SMALL CELL LUNG CANCER EXTENSIVE STAGE
     Dosage: TO ACHIEVE AN INITIAL TARGET AUC OF 5 MG/ML/MIN?DATE OF MOST RECENT DOSE PRIOR TO SAE: 25/NOV/2020 A
     Route: 042
     Dates: start: 20201104
  19. HYDROCHLOROTHIAZIDE. [Concomitant]
     Active Substance: HYDROCHLOROTHIAZIDE
     Indication: HYPERTENSION
     Route: 048
  20. FENTANIL [Concomitant]
     Active Substance: FENTANYL
     Indication: ARTHRALGIA
     Route: 062
  21. FENTANIL [Concomitant]
     Active Substance: FENTANYL
     Indication: ARTHRALGIA
     Route: 048
  22. ONDANSETRON [Concomitant]
     Active Substance: ONDANSETRON
     Indication: PROPHYLAXIS
     Route: 042
     Dates: start: 20201104, end: 20201104
  23. SODIUM CHLORIDE. [Concomitant]
     Active Substance: SODIUM CHLORIDE
     Route: 042
     Dates: start: 20201125, end: 20201125
  24. CILOSTAZOL. [Concomitant]
     Active Substance: CILOSTAZOL
     Indication: PERIPHERAL ARTERIAL OCCLUSIVE DISEASE
     Route: 048
  25. DEXKETOPROFEN [Concomitant]
     Active Substance: DEXKETOPROFEN
     Indication: PAIN IN EXTREMITY
  26. ONDANSETRON [Concomitant]
     Active Substance: ONDANSETRON
     Route: 042
     Dates: start: 20201125, end: 20201125
  27. PREGABALINE [Concomitant]
     Active Substance: PREGABALIN
     Indication: ARTHRALGIA
     Route: 048
  28. DEXAMETHASONE. [Concomitant]
     Active Substance: DEXAMETHASONE
     Indication: PROPHYLAXIS
     Route: 042
     Dates: start: 20201104, end: 20201104

REACTIONS (1)
  - Nervous system disorder [Recovered/Resolved]

NARRATIVE: CASE EVENT DATE: 20201204
